FAERS Safety Report 6055374-5 (Version None)
Quarter: 2009Q1

REPORT INFORMATION
  Report Type: 
  Country: None (occurrence: None)
  Receive Date: 20090128
  Receipt Date: 20090127
  Transmission Date: 20090719
  Serious: Yes (Other)
  Sender: FDA-Public Use
  Company Number: A0765233A

PATIENT
  Age: 63 Year
  Sex: Female

DRUGS (1)
  1. ALLI [Suspect]
     Dates: end: 20081120

REACTIONS (3)
  - CARDIOMYOPATHY [None]
  - FAECES HARD [None]
  - FATIGUE [None]
